FAERS Safety Report 19486930 (Version 2)
Quarter: 2021Q3

REPORT INFORMATION
  Report Type: Spontaneous
  Country: US (occurrence: US)
  Receive Date: 20210702
  Receipt Date: 20210916
  Transmission Date: 20211014
  Serious: Yes (Other)
  Sender: FDA-Public Use
  Company Number: US-BAYER-2021-166261

PATIENT
  Age: 90 Year
  Sex: Female

DRUGS (1)
  1. CIPRO [Suspect]
     Active Substance: CIPROFLOXACIN HYDROCHLORIDE
     Indication: URINARY TRACT INFECTION
     Dosage: 250 MG, QD
     Route: 048

REACTIONS (3)
  - Tinnitus [None]
  - Hallucination [None]
  - Joint swelling [None]

NARRATIVE: CASE EVENT DATE: 202104
